FAERS Safety Report 4364716-8 (Version None)
Quarter: 2004Q2

REPORT INFORMATION
  Report Type: 
  Country: None (occurrence: None)
  Receive Date: 20040521
  Receipt Date: 20040430
  Transmission Date: 20050107
  Serious: Yes (Hospitalization)
  Sender: FDA-Public Use
  Company Number: USA030331385

PATIENT
  Age: 65 Year
  Sex: Female
  Weight: 48 kg

DRUGS (11)
  1. FORTEO [Suspect]
     Indication: OSTEOPOROSIS
     Dosage: 20 UG DAY
     Dates: start: 20030313
  2. DILAUDID [Concomitant]
  3. PREMARIN [Concomitant]
  4. PREVACID [Concomitant]
  5. XANAX [Concomitant]
  6. ZOFRAN [Concomitant]
  7. PHENERGAN [Concomitant]
  8. CALCIUM [Concomitant]
  9. MIACALCIN [Concomitant]
  10. PREMPRO [Concomitant]
  11. FIORINAL [Concomitant]

REACTIONS (8)
  - BACK PAIN [None]
  - FATIGUE [None]
  - FEELING ABNORMAL [None]
  - HEADACHE [None]
  - HIP FRACTURE [None]
  - NAUSEA [None]
  - NERVOUSNESS [None]
  - PHARMACEUTICAL PRODUCT COMPLAINT [None]
